FAERS Safety Report 6048391-2 (Version None)
Quarter: 2009Q1

REPORT INFORMATION
  Report Type: 
  Country: None (occurrence: None)
  Receive Date: 20090123
  Receipt Date: 20090116
  Transmission Date: 20090719
  Serious: Yes (Death, Hospitalization)
  Sender: FDA-Public Use
  Company Number: A0719184A

PATIENT
  Age: 69 Year
  Sex: Male
  Weight: 74.5 kg

DRUGS (1)
  1. AVANDIA [Suspect]
     Dosage: 8MG PER DAY
     Route: 048
     Dates: end: 20041210

REACTIONS (1)
  - CARDIAC FAILURE CONGESTIVE [None]
